FAERS Safety Report 20755687 (Version 7)
Quarter: 2024Q2

REPORT INFORMATION
  Report Type: Spontaneous
  Country: US (occurrence: US)
  Receive Date: 20220427
  Receipt Date: 20240509
  Transmission Date: 20240716
  Serious: No
  Sender: FDA-Public Use
  Company Number: US-PFIZER INC-202200513153

PATIENT
  Age: 30 Year
  Sex: Male

DRUGS (3)
  1. SOMAVERT [Suspect]
     Active Substance: PEGVISOMANT
     Indication: Acromegaly
     Dosage: 10 MG, SINGLE (10 MG W/PFS DILUENT (SINGLE))
     Dates: start: 20220201
  2. SOMAVERT [Suspect]
     Active Substance: PEGVISOMANT
     Indication: Gigantism
     Dosage: 10 MG, DAILY(DAILY DOSE 30 DAY PACKAG)
  3. SOMAVERT [Suspect]
     Active Substance: PEGVISOMANT
     Indication: Pituitary tumour benign

REACTIONS (3)
  - Sleep deficit [Unknown]
  - Product dose omission in error [Unknown]
  - Off label use [Unknown]

NARRATIVE: CASE EVENT DATE: 20220101
